FAERS Safety Report 5572095-3 (Version None)
Quarter: 2007Q4

REPORT INFORMATION
  Report Type: 
  Country: None (occurrence: None)
  Receive Date: 20071221
  Receipt Date: 20071215
  Transmission Date: 20080405
  Serious: Yes (Life-Threatening, Other)
  Sender: FDA-Public Use
  Company Number: US-PFIZER INC-2007086917

PATIENT
  Sex: Female
  Weight: 110.2 kg

DRUGS (13)
  1. CAMPTOSAR [Suspect]
     Indication: COLON CANCER METASTATIC
     Dosage: TEXT:^389^
     Route: 042
  2. CAMPTOSAR [Suspect]
     Indication: HEPATIC CANCER METASTATIC
  3. SEROQUEL [Concomitant]
  4. CYMBALTA [Concomitant]
  5. SYNTHROID [Concomitant]
  6. LUNESTA [Concomitant]
  7. CLONAZEPAM [Concomitant]
  8. PSYLLIUM [Concomitant]
  9. VITAMIN D [Concomitant]
  10. OXYCODONE HCL [Concomitant]
  11. IBUPROFEN [Concomitant]
  12. MIRALAX [Concomitant]
     Dosage: FREQ:AS NEEDED
  13. LEUCOVORIN [Concomitant]

REACTIONS (9)
  - ABDOMINAL PAIN [None]
  - ASTHENIA [None]
  - BLOOD PRESSURE DECREASED [None]
  - CHEST DISCOMFORT [None]
  - ERUCTATION [None]
  - MUSCLE SPASMS [None]
  - MYOCARDIAL ISCHAEMIA [None]
  - OXYGEN SATURATION ABNORMAL [None]
  - VASCULAR OCCLUSION [None]
